FAERS Safety Report 4749896-4 (Version None)
Quarter: 2005Q3

REPORT INFORMATION
  Report Type: 
  Country: None (occurrence: None)
  Receive Date: 20050822
  Receipt Date: 20050803
  Transmission Date: 20060218
  Serious: Yes (Hospitalization)
  Sender: FDA-Public Use
  Company Number: DSA_26824_2005

PATIENT
  Age: 28 Year
  Sex: Male

DRUGS (5)
  1. LORAZEPAM [Suspect]
     Dosage: 3.5 MG ONCE PO
     Route: 048
     Dates: start: 20050731, end: 20050731
  2. COCAINE [Suspect]
     Dosage: 300 MG ONCE PO
     Route: 048
     Dates: start: 20050731, end: 20050731
  3. ALCOHOL [Suspect]
     Dosage: DF ONCE PO
     Route: 048
     Dates: start: 20050731, end: 20050731
  4. TRAMADOL HCL [Suspect]
     Dosage: 4 TAB ONCE PO
     Route: 048
     Dates: start: 20050731, end: 20050731
  5. TRAMADOL HCL [Suspect]
     Dosage: 1000 MG ONCE PO
     Route: 048
     Dates: start: 20050731, end: 20050731

REACTIONS (5)
  - DRUG ABUSER [None]
  - HYPERHIDROSIS [None]
  - INTENTIONAL MISUSE [None]
  - MULTIPLE DRUG OVERDOSE [None]
  - TREMOR [None]
